FAERS Safety Report 15944587 (Version 3)
Quarter: 2019Q1

REPORT INFORMATION
  Report Type: Spontaneous
  Country: US (occurrence: US)
  Receive Date: 20190211
  Receipt Date: 20190326
  Transmission Date: 20190417
  Serious: Yes (Other)
  Sender: FDA-Public Use
  Company Number: US-ICU MEDICAL, INC.-ICU2019US00024

PATIENT
  Age: 4 Year

DRUGS (2)
  1. ERWINAZE [Suspect]
     Active Substance: ASPARAGINASE ERWINIA CHRYSANTHEMI
     Indication: LEUKAEMIA
     Dosage: UNK
     Dates: start: 20181210
  2. 0.9% SODIUM CHLORIDE INJECTION USP (100 ML) [Suspect]
     Active Substance: SODIUM CHLORIDE
     Indication: LEUKAEMIA
     Dosage: UNK
     Route: 042
     Dates: start: 20181210

REACTIONS (6)
  - Hyperhidrosis [Recovered/Resolved]
  - Oxygen saturation decreased [Recovered/Resolved]
  - Hypotension [Recovered/Resolved]
  - Lip swelling [Recovered/Resolved]
  - Dyspnoea [Recovered/Resolved]
  - Erythema [Recovered/Resolved]

NARRATIVE: CASE EVENT DATE: 20181210
